FAERS Safety Report 23761768 (Version 4)
Quarter: 2024Q2

REPORT INFORMATION
  Report Type: Spontaneous
  Country: IT (occurrence: IT)
  Receive Date: 20240419
  Receipt Date: 20240602
  Transmission Date: 20240715
  Serious: Yes (Hospitalization)
  Sender: FDA-Public Use
  Company Number: IT-JNJFOC-20240439472

PATIENT
  Age: 12 Year
  Sex: Female

DRUGS (1)
  1. RISPERDAL [Suspect]
     Active Substance: RISPERIDONE
     Indication: Product used for unknown indication
     Dosage: NUMBER OF ADMINISTRATION 2
     Route: 048

REACTIONS (4)
  - Asthenia [Recovering/Resolving]
  - Overdose [Unknown]
  - Product label confusion [Unknown]
  - Device use confusion [Unknown]
